FAERS Safety Report 7177123-X (Version None)
Quarter: 2010Q4

REPORT INFORMATION
  Report Type: 
  Country: None (occurrence: None)
  Receive Date: 20101207
  Receipt Date: 20101122
  Transmission Date: 20110411
  Serious: Yes (Hospitalization)
  Sender: FDA-Public Use
  Company Number: 019887

PATIENT
  Sex: Female

DRUGS (2)
  1. CIMZIA [Suspect]
     Indication: RHEUMATOID ARTHRITIS
     Dosage: (400 MG (2 INJECTIONS OF 200 MG EACH) - FIRST DOSE SUBCUTANEOUS)
     Route: 058
     Dates: start: 20101004
  2. PIRITON (PIRITON) [Suspect]

REACTIONS (9)
  - BURNING SENSATION [None]
  - DIAPHRAGMALGIA [None]
  - FEELING HOT [None]
  - MASS [None]
  - MUCOUS MEMBRANE DISORDER [None]
  - MYALGIA [None]
  - PARAESTHESIA ORAL [None]
  - PRURITUS [None]
  - RASH [None]
